FAERS Safety Report 9972309 (Version 3)
Quarter: 2014Q1

REPORT INFORMATION
  Report Type: Spontaneous
  Country: FR (occurrence: FR)
  Receive Date: 20140306
  Receipt Date: 20140320
  Transmission Date: 20141002
  Serious: Yes (Hospitalization)
  Sender: FDA-Public Use
  Company Number: FR-PFIZER INC-2014058158

PATIENT
  Age: 64 Year
  Sex: Female

DRUGS (11)
  1. INSPRA [Suspect]
     Dosage: 50 MG, 1X/DAY
     Route: 048
     Dates: end: 201310
  2. RAMIPRIL [Suspect]
     Dosage: 2.5 MG, 1X/DAY
     Route: 048
     Dates: end: 201310
  3. LASILIX SPECIAL [Suspect]
     Dosage: 250 MG, 2X/DAY
     Route: 048
     Dates: end: 201310
  4. ESIDREX [Suspect]
     Dosage: 25 MG, 1X/DAY
     Route: 048
     Dates: end: 201310
  5. PROCORALAN [Concomitant]
     Dosage: 10 MG, 1X/DAY
     Route: 048
  6. CARDENSIEL [Concomitant]
     Dosage: 1.25 MG, 1X/DAY
     Route: 048
  7. BRILIQUE [Concomitant]
     Dosage: 180 MG, 1X/DAY
     Route: 048
  8. KARDEGIC [Concomitant]
     Dosage: 75 MG, 1X/DAY
     Route: 048
  9. INEXIUM /01479302/ [Concomitant]
     Dosage: 20 MG, 1X/DAY
     Route: 048
  10. VIREAD [Concomitant]
     Dosage: 245 MG, 1X/DAY
     Route: 048
  11. ZEFFIX [Concomitant]
     Dosage: 100 MG, 1X/DAY
     Route: 048

REACTIONS (3)
  - Hypotension [Recovered/Resolved]
  - Dehydration [Recovered/Resolved]
  - Renal failure [Recovered/Resolved with Sequelae]
